FAERS Safety Report 9968099 (Version 1)
Quarter: 2014Q1

REPORT INFORMATION
  Report Type: Report from Study
  Country: US (occurrence: US)
  Receive Date: 20140306
  Receipt Date: 20140306
  Transmission Date: 20141002
  Serious: No
  Sender: FDA-Public Use
  Company Number: US-ABBVIE-13P-163-1142104-00

PATIENT
  Age: 33 Year
  Sex: Male

DRUGS (4)
  1. HUMIRA [Suspect]
     Indication: CROHN^S DISEASE
     Dates: start: 20130809, end: 20130809
  2. HUMIRA [Suspect]
     Dates: start: 20130823, end: 20130823
  3. HUMIRA [Suspect]
  4. BUDESONIDE [Concomitant]
     Indication: CROHN^S DISEASE

REACTIONS (2)
  - Frequent bowel movements [Not Recovered/Not Resolved]
  - Defaecation urgency [Not Recovered/Not Resolved]
